FAERS Safety Report 12447649 (Version 1)
Quarter: 2016Q2

REPORT INFORMATION
  Report Type: Spontaneous
  Country: US (occurrence: US)
  Receive Date: 20160608
  Receipt Date: 20160608
  Transmission Date: 20160815
  Serious: Yes (Hospitalization, Other)
  Sender: FDA-Public Use
  Company Number: US-JAZZ-2016-US-010316

PATIENT
  Sex: Male

DRUGS (2)
  1. PRIALT [Suspect]
     Active Substance: ZICONOTIDE ACETATE
     Dosage: 5 ?G, SINGLE
     Route: 037
     Dates: start: 20160602, end: 20160602
  2. FENTANYL. [Suspect]
     Active Substance: FENTANYL
     Dosage: 6000 ?G, UNK
     Route: 037

REACTIONS (3)
  - Lethargy [Unknown]
  - Depressed level of consciousness [Unknown]
  - Respiratory depression [Unknown]

NARRATIVE: CASE EVENT DATE: 20160602
